FAERS Safety Report 6530043-3 (Version None)
Quarter: 2010Q1

REPORT INFORMATION
  Report Type: 
  Country: None (occurrence: None)
  Receive Date: 20100104
  Receipt Date: 20091227
  Transmission Date: 20100710
  Serious: No
  Sender: FDA-Public Use
  Company Number: 20097875

PATIENT
  Sex: Female

DRUGS (1)
  1. LIORESAL [Suspect]
     Indication: MUSCLE SPASTICITY
     Dosage: 1462.1 MCG, DAILY, INTRATHECAL
     Route: 037

REACTIONS (3)
  - MUSCLE RIGIDITY [None]
  - UNDERDOSE [None]
  - UNRESPONSIVE TO STIMULI [None]
